FAERS Safety Report 8892713 (Version 1)
Quarter: 2012Q4

REPORT INFORMATION
  Report Type: 
  Country: US (occurrence: US)
  Receive Date: 20121107
  Receipt Date: 20121107
  Transmission Date: 20130627
  Serious: No
  Sender: FDA-Public Use
  Company Number: US-AMGEN-USASP2011054426

PATIENT
  Sex: Female

DRUGS (7)
  1. ENBREL [Suspect]
     Indication: PRODUCT USED FOR UNKNOWN INDICATION
     Dosage: 25 mg, 2 times/wk
     Route: 058
  2. CYMBALTA [Concomitant]
     Dosage: 60 mg, UNK
  3. BOTOX [Concomitant]
     Dosage: UNK
  4. PREMARIN [Concomitant]
     Dosage: 0.625 mg, UNK
  5. BACLOFEN [Concomitant]
     Dosage: 10 mg, UNK
  6. TOPROL XL [Concomitant]
     Dosage: 25 mg, UNK
  7. MOBIC [Concomitant]
     Dosage: 7.5 mg, UNK

REACTIONS (2)
  - Injection site bruising [Unknown]
  - Injection site reaction [Unknown]
